FAERS Safety Report 11786690 (Version 2)
Quarter: 2015Q4

REPORT INFORMATION
  Report Type: Report from Study
  Country: CA (occurrence: CA)
  Receive Date: 20151130
  Receipt Date: 20151201
  Transmission Date: 20160305
  Serious: Yes (Other)
  Sender: FDA-Public Use
  Company Number: CA-JNJFOC-20151126278

PATIENT
  Sex: Male
  Weight: 105.24 kg

DRUGS (20)
  1. APO-METHOTREXATE [Concomitant]
     Dosage: (OR 6 TABLETS IN 1 DOSE = 15 MG/DAY) 1 DAY PER WEEK
     Route: 065
  2. CALCIUM CARBONATE AND VITAMIN D [Concomitant]
     Dosage: 500 MG-400 UI??ORIGINAL DATE: 07-APR-2015??LAST REFILL: 29-OCT-2015
     Route: 065
  3. ACETAMINOPHEN. [Concomitant]
     Active Substance: ACETAMINOPHEN
     Dosage: ORIGINAL DATE: 07-APR-2015??LAST REFILL: 29-OCT-2015
     Route: 065
  4. ELOCOM [Concomitant]
     Active Substance: MOMETASONE FUROATE
     Route: 061
  5. NOVOPREDNISONE [Concomitant]
     Dosage: 1 TABLET ONCE A DAY AT BREAKFAST FOR 5 DAYS THEN HALF TABLET ONCE A DAY AT BREAKFAST FOR 5 DAYS
     Route: 065
  6. LANTUS [Concomitant]
     Active Substance: INSULIN GLARGINE
     Dosage: AM??ORIGINAL DATE: 07-APR-2015??LAST REFILL: 29-SEP-2015
     Route: 058
  7. CELECOXIB. [Concomitant]
     Active Substance: CELECOXIB
     Dosage: BREAKFAST AND SUPPER PRN (WITH FOOD)??ORIGINAL DATE: 07-APR-2015??LAST REFILL: 29-SEP-2015
     Route: 065
  8. PREDNISONE. [Concomitant]
     Active Substance: PREDNISONE
     Dosage: AM AT BREAKFAST??ORIGINAL DATE: 19-MAY-2015??LAST REFILL: 31-AUG-2015
     Route: 065
  9. CITALOPRAM [Concomitant]
     Active Substance: CITALOPRAM HYDROBROMIDE
     Dosage: ORIGINAL DATE: 07-APR-2015??LAST REFILL: 29-OCT-2015
     Route: 065
  10. REMICADE [Suspect]
     Active Substance: INFLIXIMAB
     Indication: CROHN^S DISEASE
     Route: 042
     Dates: start: 20110405
  11. TAMSULOSIN CR [Concomitant]
     Active Substance: TAMSULOSIN
     Dosage: ORIGINAL DATE: 07-APR-2015??LAST REFILL: 29-OCT-2015
     Route: 065
  12. PANTOPRAZOLE SODIUM. [Concomitant]
     Active Substance: PANTOPRAZOLE SODIUM
     Route: 065
  13. REMICADE [Suspect]
     Active Substance: INFLIXIMAB
     Indication: CROHN^S DISEASE
     Dosage: ORIGINAL DATE: 21-MAY-2015??LAST REFILL DATE: 16-NOV-2015
     Route: 042
     Dates: start: 2015
  14. VITAMIN D3 [Concomitant]
     Active Substance: CHOLECALCIFEROL
     Dosage: BREAKFAST??ORIGINAL DATE: 07-APR-2015??LAST REFILL: 29-OCT-2015
     Route: 065
  15. ATORVASTATIN [Concomitant]
     Active Substance: ATORVASTATIN
     Indication: BLOOD CHOLESTEROL ABNORMAL
     Dosage: ORIGINAL DATE: 07-APR-2015??LAST REFILL: 29-OCT-2015
     Route: 065
  16. OXAZEPAM. [Concomitant]
     Active Substance: OXAZEPAM
     Dosage: ORIGINAL DATE: 07-APR-2015??LAST REFILL: 29-OCT-2015
     Route: 065
  17. DICLOFENAC DIETHYLAMINE [Concomitant]
     Active Substance: DICLOFENAC DIETHYLAMINE
     Dosage: 3-4 TIMES A DAY??ORIGINAL DATE: 29-OCT-2015??LAST REFILL: 29-OCT-2015
     Route: 061
  18. REMICADE [Suspect]
     Active Substance: INFLIXIMAB
     Indication: CROHN^S DISEASE
     Route: 042
     Dates: start: 2015
  19. COVERSYL [Concomitant]
     Active Substance: PERINDOPRIL
     Dosage: BEFORE BREAKFAST??ORIGINAL DATE: 05-OCT-2015??LAST REFILL: 29-OCT-2015
     Route: 065
  20. NOVORAPID [Concomitant]
     Active Substance: INSULIN ASPART
     Dosage: 5 TO 10 UNITS, AT MEALTIME??ORIGINAL DATE: 07-APR-2015LAST REFILL: 01-JUN-2015
     Route: 065

REACTIONS (1)
  - Prostate cancer [Unknown]

NARRATIVE: CASE EVENT DATE: 2015
